FAERS Safety Report 6111137-3 (Version None)
Quarter: 2009Q1

REPORT INFORMATION
  Report Type: 
  Country: None (occurrence: None)
  Receive Date: 20090309
  Receipt Date: 20090309
  Transmission Date: 20090719
  Serious: Yes (Hospitalization)
  Sender: FDA-Public Use
  Company Number: None

PATIENT
  Age: 50 Year
  Sex: Female
  Weight: 75.2971 kg

DRUGS (1)
  1. BACTRIM [Suspect]
     Indication: INFECTION
     Dates: start: 20080910, end: 20080917

REACTIONS (3)
  - BLISTER [None]
  - OROPHARYNGEAL BLISTERING [None]
  - TONGUE BLISTERING [None]
